FAERS Safety Report 12223280 (Version 1)
Quarter: 2016Q1

REPORT INFORMATION
  Report Type: Spontaneous
  Country: US (occurrence: US)
  Receive Date: 20160330
  Receipt Date: 20160330
  Transmission Date: 20160526
  Serious: Yes (Other)
  Sender: FDA-Public Use
  Company Number: US-ASTRAZENECA-2016SE32031

PATIENT
  Age: 90 Year
  Sex: Male

DRUGS (12)
  1. LASIX [Concomitant]
     Active Substance: FUROSEMIDE
     Route: 048
  2. PLAVIX [Concomitant]
     Active Substance: CLOPIDOGREL BISULFATE
     Route: 048
  3. PROSCAR [Concomitant]
     Active Substance: FINASTERIDE
     Route: 048
  4. PEN-V [Concomitant]
     Route: 048
  5. PROTONIX [Suspect]
     Active Substance: PANTOPRAZOLE SODIUM
     Route: 048
  6. CARDURA [Suspect]
     Active Substance: DOXAZOSIN MESYLATE
     Route: 048
  7. ECOTRIN [Concomitant]
     Active Substance: ASPIRIN
     Route: 048
  8. LEUPRORELIN [Concomitant]
     Active Substance: LEUPROLIDE ACETATE
  9. XTANDI [Concomitant]
     Active Substance: ENZALUTAMIDE
  10. CASODEX [Suspect]
     Active Substance: BICALUTAMIDE
     Route: 048
  11. METANX [Concomitant]
     Active Substance: LEVOMEFOLATE CALCIUM\METHYLCOBALAMIN\PYRIDOXAL PHOSPHATE ANHYDROUS
     Route: 048
  12. PRAVACHOL [Concomitant]
     Active Substance: PRAVASTATIN SODIUM
     Route: 048

REACTIONS (6)
  - Dehydration [Unknown]
  - Metastases to bone [Unknown]
  - Malignant neoplasm progression [Unknown]
  - Therapy cessation [Unknown]
  - Myalgia [Unknown]
  - Back pain [Recovered/Resolved]
